FAERS Safety Report 9554454 (Version 3)
Quarter: 2013Q4

REPORT INFORMATION
  Report Type: Report from Study
  Country: CA (occurrence: CA)
  Receive Date: 20130925
  Receipt Date: 20131010
  Transmission Date: 20140711
  Serious: Yes (Hospitalization)
  Sender: FDA-Public Use
  Company Number: CA-ABBVIE-13P-028-1138679-00

PATIENT
  Sex: Male

DRUGS (4)
  1. HUMIRA [Suspect]
     Indication: CROHN^S DISEASE
     Route: 058
     Dates: start: 20120615, end: 20130815
  2. HUMIRA [Suspect]
     Route: 058
     Dates: start: 20130822
  3. HUMIRA [Suspect]
     Dates: start: 20130905
  4. HUMIRA [Suspect]

REACTIONS (3)
  - Malaise [Recovered/Resolved]
  - Incorrect dose administered [Unknown]
  - Drug dose omission [Unknown]
